FAERS Safety Report 8343136-5 (Version None)
Quarter: 2012Q2

REPORT INFORMATION
  Report Type: 
  Country: None (occurrence: None)
  Receive Date: 20120508
  Receipt Date: 20120430
  Transmission Date: 20120825
  Serious: Yes (Other)
  Sender: FDA-Public Use
  Company Number: US-BAYER-2012-002913

PATIENT
  Age: 48 Year
  Sex: Female
  Weight: 79 kg

DRUGS (9)
  1. GUAIFENESIN [Concomitant]
  2. ALLEGRA [Concomitant]
  3. CRESTOR [Concomitant]
  4. POTASSIUM CHLORIDE [Concomitant]
  5. FOLIC ACID [Concomitant]
  6. YASMIN [Suspect]
     Dates: start: 20050701
  7. GLUCOPHAGE [Concomitant]
  8. PREDNISONE TAB [Concomitant]
  9. LASIX [Concomitant]

REACTIONS (3)
  - PAIN [None]
  - PULMONARY EMBOLISM [None]
  - INJURY [None]
